FAERS Safety Report 4607890-8 (Version None)
Quarter: 2005Q1

REPORT INFORMATION
  Report Type: 
  Country: None (occurrence: None)
  Receive Date: 20050310
  Receipt Date: 20050303
  Transmission Date: 20050727
  Serious: Yes (Hospitalization)
  Sender: FDA-Public Use
  Company Number: 2005-00775

PATIENT
  Age: 46 Year
  Sex: Female

DRUGS (6)
  1. FENTANYL CITRATE [Suspect]
     Indication: ANALGESIC EFFECT
     Dosage: 50 MCG, SINGLE, INTRAVENOUS
     Route: 042
  2. FENTANYL CITRATE [Suspect]
     Indication: SEDATION
     Dosage: 50 MCG, SINGLE, INTRAVENOUS
     Route: 042
  3. MIDAZOLAM HCL [Concomitant]
  4. PROPRANOLOL [Concomitant]
  5. OMEPRAZOLE [Concomitant]
  6. ASPIRIN (ACTYLSALICYLIC ACID) [Concomitant]

REACTIONS (7)
  - ANAESTHETIC COMPLICATION [None]
  - CONDITION AGGRAVATED [None]
  - HEMIPARESIS [None]
  - LOSS OF CONSCIOUSNESS [None]
  - MIGRAINE WITH AURA [None]
  - NEUROLOGICAL SYMPTOM [None]
  - PROCEDURAL COMPLICATION [None]
